FAERS Safety Report 4347951-4 (Version None)
Quarter: 2004Q1

REPORT INFORMATION
  Report Type: 
  Country: None (occurrence: None)
  Receive Date: 20040325
  Receipt Date: 20040217
  Transmission Date: 20041129
  Serious: No
  Sender: FDA-Public Use
  Company Number: USA040157121

PATIENT
  Age: 71 Year
  Sex: Female

DRUGS (2)
  1. FORTEO [Suspect]
     Indication: OSTEOPOROSIS
     Dates: start: 20031101
  2. ASPIRIN [Concomitant]

REACTIONS (4)
  - ESSENTIAL TREMOR [None]
  - INJECTION SITE HAEMORRHAGE [None]
  - LACERATION [None]
  - PULMONARY FIBROSIS [None]
